FAERS Safety Report 8404290-X (Version None)
Quarter: 2012Q2

REPORT INFORMATION
  Report Type: 
  Country: None (occurrence: None)
  Receive Date: 20120601
  Receipt Date: 20120521
  Transmission Date: 20120825
  Serious: Yes (Hospitalization, Other)
  Sender: FDA-Public Use
  Company Number: GB-MYLANLABS-2012S1006968

PATIENT
  Age: 55 Year
  Sex: Female
  Weight: 146 kg

DRUGS (8)
  1. EFFEXOR [Suspect]
     Indication: DEPRESSION
     Route: 048
     Dates: start: 20120109
  2. IRBESARTAN [Concomitant]
     Indication: HYPERTENSION
     Route: 048
  3. IBUPROFEN [Concomitant]
     Indication: HEADACHE
  4. METFORMIN HCL [Concomitant]
     Indication: OBESITY
     Route: 048
  5. EFFEXOR [Suspect]
     Route: 048
     Dates: start: 20120208
  6. IBUPROFEN [Concomitant]
     Indication: PAIN
  7. FLUOXETINE [Suspect]
     Indication: DEPRESSION
     Route: 048
     Dates: end: 20120301
  8. BENDROFLUMETHIAZIDE [Concomitant]
     Indication: HYPERTENSION
     Route: 048

REACTIONS (2)
  - ENDOMETRIAL HYPERPLASIA [None]
  - MENORRHAGIA [None]
